FAERS Safety Report 9996571 (Version 1)
Quarter: 2014Q1

REPORT INFORMATION
  Report Type: Spontaneous
  Country: ES (occurrence: ES)
  Receive Date: 20140311
  Receipt Date: 20140311
  Transmission Date: 20141002
  Serious: Yes (Other)
  Sender: FDA-Public Use
  Company Number: ES-TEVA-468002USA

PATIENT
  Age: 71 Year
  Sex: 0

DRUGS (2)
  1. BENDAMUSTINE [Suspect]
     Indication: MANTLE CELL LYMPHOMA
     Route: 065
     Dates: start: 20140114
  2. RITUXIMAB [Suspect]
     Indication: MANTLE CELL LYMPHOMA
     Route: 065
     Dates: start: 20140114

REACTIONS (4)
  - Neurotoxicity [Unknown]
  - Muscular weakness [Unknown]
  - Guillain-Barre syndrome [Unknown]
  - Sepsis [Unknown]
